FAERS Safety Report 18313775 (Version 1)
Quarter: 2020Q3

REPORT INFORMATION
  Report Type: Spontaneous
  Country: CN (occurrence: CN)
  Receive Date: 20200925
  Receipt Date: 20200925
  Transmission Date: 20201103
  Serious: Yes (Other)
  Sender: FDA-Public Use
  Company Number: CN-JNJFOC-20200937280

PATIENT
  Age: 30 Year
  Sex: Male
  Weight: 55 kg

DRUGS (1)
  1. XARELTO [Suspect]
     Active Substance: RIVAROXABAN
     Indication: CONGESTIVE CARDIOMYOPATHY
     Dosage: 20 MG, QD
     Route: 048
     Dates: start: 20200817, end: 20200820

REACTIONS (6)
  - International normalised ratio increased [Recovered/Resolved]
  - Prothrombin time prolonged [Recovered/Resolved]
  - Off label use [Unknown]
  - Vomiting [Recovered/Resolved]
  - Nausea [Recovered/Resolved]
  - Coagulopathy [Recovered/Resolved]

NARRATIVE: CASE EVENT DATE: 20200817
